FAERS Safety Report 10467818 (Version 1)
Quarter: 2014Q3

REPORT INFORMATION
  Report Type: Other
  Country: DE (occurrence: DE)
  Receive Date: 20140922
  Receipt Date: 20140922
  Transmission Date: 20150326
  Serious: Yes (Death)
  Sender: FDA-Public Use
  Company Number: DE-MYLANLABS-2014M1004187

PATIENT

DRUGS (9)
  1. SERTRALINE [Interacting]
     Active Substance: SERTRALINE HYDROCHLORIDE
     Dosage: UNK
  2. DOXEPIN [Interacting]
     Active Substance: DOXEPIN
     Dosage: UNK
  3. OLANZAPINE 2.5 MG TABLETS [Interacting]
     Active Substance: OLANZAPINE
     Dosage: UNK
  4. OMEPRAZOL 20 MG [Interacting]
     Active Substance: OMEPRAZOLE
     Dosage: UNK
  5. AGOMELATIN 25 [Interacting]
     Active Substance: AGOMELATINE
     Dosage: UNK
  6. ATOSIL [Interacting]
     Active Substance: PROMETHAZINE HYDROCHLORIDE
     Dosage: UNK
  7. ZOPICLONE [Suspect]
     Active Substance: ZOPICLONE
     Dosage: UNK ( 300)
  8. L-THYROXIN 75 [Interacting]
     Active Substance: LEVOTHYROXINE
     Dosage: UNK
  9. LYRICA [Interacting]
     Active Substance: PREGABALIN
     Dosage: UNK

REACTIONS (2)
  - Intentional overdose [None]
  - Completed suicide [Fatal]

NARRATIVE: CASE EVENT DATE: 20130516
